FAERS Safety Report 5289430-6 (Version None)
Quarter: 2007Q2

REPORT INFORMATION
  Report Type: 
  Country: None (occurrence: None)
  Receive Date: 20070406
  Receipt Date: 20070326
  Transmission Date: 20071010
  Serious: Yes (Hospitalization)
  Sender: FDA-Public Use
  Company Number: PHBS2007IT05387

PATIENT
  Sex: Male

DRUGS (3)
  1. CYCLOSPORINE [Suspect]
     Indication: PSORIASIS
     Dosage: 300 MG/D
     Route: 065
  2. SIMVASTATIN [Suspect]
     Dosage: 20 MG/D
     Route: 065
  3. SIMVASTATIN [Suspect]
     Dosage: 40 MG/D
     Route: 065

REACTIONS (7)
  - DIALYSIS [None]
  - HAEMOLYSIS [None]
  - MYOGLOBINURIA [None]
  - OLIGURIA [None]
  - RENAL FAILURE ACUTE [None]
  - RENAL TUBULAR NECROSIS [None]
  - RHABDOMYOLYSIS [None]
